FAERS Safety Report 14291509 (Version 1)
Quarter: 2017Q4

REPORT INFORMATION
  Report Type: Spontaneous
  Country: US (occurrence: US)
  Receive Date: 20171215
  Receipt Date: 20171215
  Transmission Date: 20180321
  Serious: Yes (Hospitalization)
  Sender: FDA-Public Use
  Company Number: US-ELI_LILLY_AND_COMPANY-US201712005922

PATIENT
  Sex: Female

DRUGS (1)
  1. FORTEO [Suspect]
     Active Substance: TERIPARATIDE
     Indication: CALCIUM DEFICIENCY
     Dosage: 20 UG, UNKNOWN
     Route: 058
     Dates: start: 2015

REACTIONS (1)
  - Calcium deficiency [Unknown]
